FAERS Safety Report 6126583-1 (Version None)
Quarter: 2009Q1

REPORT INFORMATION
  Report Type: 
  Country: None (occurrence: None)
  Receive Date: 20090320
  Receipt Date: 20090310
  Transmission Date: 20090719
  Serious: Yes (Other)
  Sender: FDA-Public Use
  Company Number: US-PFIZER INC-2006067473

PATIENT
  Age: 65 Year
  Sex: Female
  Weight: 90.703 kg

DRUGS (6)
  1. PROVERA [Suspect]
     Indication: MENOPAUSE
     Dosage: UNK
     Route: 065
     Dates: start: 19950101, end: 19970101
  2. ESTRADERM [Suspect]
     Indication: HORMONE REPLACEMENT THERAPY
     Dosage: UNK
     Route: 065
     Dates: start: 19871001, end: 20040801
  3. ESTRADERM [Suspect]
     Indication: MENOPAUSE
  4. COMBIPATCH [Suspect]
     Indication: HORMONE REPLACEMENT THERAPY
     Route: 065
     Dates: start: 19950101, end: 20040101
  5. MEDROXYPROGESTERONE AND MEDROXYPROGESTERONE ACETATE [Suspect]
     Route: 065
     Dates: start: 19950101, end: 20040101
  6. CLIMARA [Suspect]
     Indication: HORMONE REPLACEMENT THERAPY
     Route: 065
     Dates: start: 19950101, end: 20040101

REACTIONS (1)
  - BREAST CANCER FEMALE [None]
